FAERS Safety Report 16669725 (Version 1)
Quarter: 2019Q3

REPORT INFORMATION
  Report Type: Spontaneous
  Country: DE (occurrence: DE)
  Receive Date: 20190805
  Receipt Date: 20190805
  Transmission Date: 20191004
  Serious: Yes (Other)
  Sender: FDA-Public Use
  Company Number: PHHY2019DE175971

PATIENT
  Age: 1 Day
  Sex: Male
  Weight: 2.6 kg

DRUGS (6)
  1. GRIPPEIMPFSTOFF [Concomitant]
     Active Substance: INFLUENZA VIRUS VACCINE
     Indication: FOETAL EXPOSURE DURING PREGNANCY
     Dosage: MATERNAL DOSE: UNK (6 TO 10 GESTATIONAL WEEK)
     Route: 064
  2. ASPIRIN. [Concomitant]
     Active Substance: ASPIRIN
     Indication: FOETAL EXPOSURE DURING PREGNANCY
     Dosage: MATERNAL DOSE: 1000 MG, QD (4.5. TO 5.4. GESTATIONAL WEEK)
     Route: 064
  3. ATENOLOL. [Suspect]
     Active Substance: ATENOLOL
     Indication: FOETAL EXPOSURE DURING PREGNANCY
     Dosage: MATERNAL DOSE: 25 MG, QD (0 TO 39.4 GESTATIONAL WEEK)
     Route: 064
     Dates: start: 20171119, end: 20180823
  4. ASPIRIN. [Concomitant]
     Active Substance: ASPIRIN
     Dosage: MATERNAL DOSE: 100 MG, QD (0 TO 39.4 GESTATIONAL WEEK)
     Route: 064
  5. VOMEX A [Concomitant]
     Active Substance: DIMENHYDRINATE
     Indication: FOETAL EXPOSURE DURING PREGNANCY
     Dosage: MATERNAL DOSE: 300 MG, QD ((2X150) 2 SEPARATED DOSES) (13 TO 36 GESTATIONAL WEEK)
     Route: 064
  6. IBUPROFEN. [Concomitant]
     Active Substance: IBUPROFEN
     Indication: FOETAL EXPOSURE DURING PREGNANCY
     Dosage: MATERNAL DOSE: 1200 MG, QD (4.5. TO 6.5. GESTATIONAL WEEK)
     Route: 064

REACTIONS (5)
  - Congenital inguinal hernia [Unknown]
  - Hydrocele [Unknown]
  - Foetal exposure during pregnancy [Unknown]
  - Small for dates baby [Recovered/Resolved]
  - Cryptorchism [Unknown]

NARRATIVE: CASE EVENT DATE: 20180823
